FAERS Safety Report 6636217-5 (Version None)
Quarter: 2010Q1

REPORT INFORMATION
  Report Type: 
  Country: None (occurrence: None)
  Receive Date: 20100316
  Receipt Date: 20100305
  Transmission Date: 20100710
  Serious: Yes (Other)
  Sender: FDA-Public Use
  Company Number: US-PFIZER INC-2010029742

PATIENT
  Sex: Female

DRUGS (11)
  1. XANAX [Suspect]
     Indication: ANXIETY
     Dosage: UNK
     Route: 048
     Dates: start: 20100125
  2. ZOLOFT [Suspect]
     Indication: DEPRESSION
     Dosage: UNK
     Route: 048
     Dates: start: 20100304
  3. ZOLOFT [Suspect]
     Indication: DISTURBANCE IN ATTENTION
  4. ZOLOFT [Suspect]
     Indication: ANXIETY
  5. TENORMIN [Suspect]
  6. CALCIUM WITH VITAMIN D [Suspect]
  7. VITAMIN B COMPLEX CAP [Suspect]
  8. SIMVASTATIN [Suspect]
  9. ACETYLSALICYLIC ACID SRT [Suspect]
  10. PREMARIN [Suspect]
  11. LEVOTHYROXINE [Concomitant]
     Dosage: UNK

REACTIONS (4)
  - ANXIETY [None]
  - DEPRESSION [None]
  - DRUG INEFFECTIVE [None]
  - HYPERTENSION [None]
